FAERS Safety Report 7297967-3 (Version None)
Quarter: 2011Q1

REPORT INFORMATION
  Report Type: 
  Country: None (occurrence: None)
  Receive Date: 20110217
  Receipt Date: 20110208
  Transmission Date: 20110831
  Serious: Yes (Other)
  Sender: FDA-Public Use
  Company Number: US-US-EMD SERONO, INC.-7031167

PATIENT
  Sex: Female

DRUGS (8)
  1. COUMADIN [Concomitant]
     Indication: PERIPHERAL EMBOLISM
  2. REBIF [Suspect]
     Route: 058
     Dates: start: 20110207
  3. COUMADIN [Concomitant]
  4. LOVENOX [Concomitant]
     Indication: PERIPHERAL EMBOLISM
  5. REBIF [Suspect]
     Route: 058
     Dates: start: 20110101, end: 20110207
  6. ALEVE [Concomitant]
  7. REBIF [Suspect]
     Indication: PRODUCT USED FOR UNKNOWN INDICATION
     Route: 058
     Dates: start: 20101013, end: 20110101
  8. TYLENOL [Concomitant]

REACTIONS (7)
  - GRANULOMA ANNULARE [None]
  - INJECTION SITE HAEMATOMA [None]
  - INJECTION SITE RASH [None]
  - HEADACHE [None]
  - FLUID INTAKE REDUCED [None]
  - INJECTION SITE ERYTHEMA [None]
  - INJECTION SITE PAIN [None]
